FAERS Safety Report 11481168 (Version 1)
Quarter: 2015Q3

REPORT INFORMATION
  Report Type: Spontaneous
  Country: US (occurrence: US)
  Receive Date: 20150909
  Receipt Date: 20150909
  Transmission Date: 20151125
  Serious: No
  Sender: FDA-Public Use
  Company Number: US-JAZZ-2014-US-015750

PATIENT
  Age: 51 Year
  Sex: Female
  Weight: 58.5 kg

DRUGS (3)
  1. TEMAZEPAM. [Concomitant]
     Active Substance: TEMAZEPAM
     Indication: SLEEP DISORDER
     Dosage: UNK
     Route: 048
  2. XYREM [Suspect]
     Active Substance: SODIUM OXYBATE
     Indication: NARCOLEPSY
     Dosage: 3 G, FIRST DOSE
     Route: 048
     Dates: start: 20141125, end: 20141125
  3. PHENTERMINE. [Concomitant]
     Active Substance: PHENTERMINE
     Indication: SOMNOLENCE
     Dosage: UNK
     Route: 048

REACTIONS (7)
  - Feeling abnormal [Unknown]
  - Wrong technique in product usage process [Unknown]
  - Moaning [Unknown]
  - Dizziness [Unknown]
  - Hypoaesthesia oral [Unknown]
  - Hypoaesthesia [Unknown]
  - Musculoskeletal pain [Unknown]

NARRATIVE: CASE EVENT DATE: 201411
